FAERS Safety Report 17546836 (Version 1)
Quarter: 2020Q1

REPORT INFORMATION
  Report Type: Spontaneous
  Country: US (occurrence: US)
  Receive Date: 20200306
  Receipt Date: 20200306
  Transmission Date: 20200409
  Serious: No
  Sender: FDA-Public Use
  Company Number: None

PATIENT
  Age: 69 Year
  Sex: Male

DRUGS (1)
  1. VENLAFAXINE (VENLAFAXINE HCL 25MG TAB) [Suspect]
     Active Substance: VENLAFAXINE HYDROCHLORIDE
     Dates: start: 20191226

REACTIONS (1)
  - Suicide attempt [None]

NARRATIVE: CASE EVENT DATE: 20191226
